FAERS Safety Report 11789851 (Version 1)
Quarter: 2015Q4

REPORT INFORMATION
  Report Type: Report from Study
  Country: VE (occurrence: VE)
  Receive Date: 20151201
  Receipt Date: 20151201
  Transmission Date: 20160305
  Serious: Yes (Hospitalization)
  Sender: FDA-Public Use
  Company Number: PHHY2015VE156726

PATIENT
  Sex: Female

DRUGS (2)
  1. SANDOSTATIN LAR DEPOT [Suspect]
     Active Substance: OCTREOTIDE ACETATE
     Indication: MALIGNANT MEDIASTINAL NEOPLASM
     Dosage: 20 MG, QMO
     Route: 065
  2. SANDOSTATIN LAR DEPOT [Suspect]
     Active Substance: OCTREOTIDE ACETATE
     Indication: LUNG DISORDER

REACTIONS (4)
  - General physical health deterioration [Recovered/Resolved]
  - Asthenia [Recovering/Resolving]
  - Hypokinesia [Recovering/Resolving]
  - Product use issue [Unknown]
